FAERS Safety Report 24112129 (Version 3)
Quarter: 2024Q3

REPORT INFORMATION
  Report Type: Spontaneous
  Country: US (occurrence: US)
  Receive Date: 20240719
  Receipt Date: 20240925
  Transmission Date: 20241016
  Serious: No
  Sender: PFIZER
  Company Number: US-PFIZER INC-202400215413

PATIENT
  Age: 14 Year
  Sex: Female

DRUGS (1)
  1. GENOTROPIN [Suspect]
     Active Substance: SOMATROPIN
     Indication: Short stature
     Dosage: 1.8MG DAILY BY INJECTION BEFORE BED
     Dates: start: 202309

REACTIONS (8)
  - Drug dose omission by device [Unknown]
  - Device physical property issue [Unknown]
  - Device leakage [Unknown]
  - Product preparation issue [Unknown]
  - Underdose [Unknown]
  - Device delivery system issue [Unknown]
  - Product physical issue [Unknown]
  - Device failure [Unknown]
